FAERS Safety Report 8440276-7 (Version None)
Quarter: 2012Q2

REPORT INFORMATION
  Report Type: 
  Country: None (occurrence: None)
  Receive Date: 20120615
  Receipt Date: 20120611
  Transmission Date: 20120825
  Serious: Yes (Hospitalization)
  Sender: FDA-Public Use
  Company Number: CN-PFIZER INC-2012140604

PATIENT
  Age: 59 Year
  Sex: Male

DRUGS (7)
  1. FUROSEMIDE [Concomitant]
     Dosage: UNK
  2. NIFEDIPINE [Concomitant]
     Dosage: UNK
  3. OMEPRAZOLE [Concomitant]
     Dosage: UNK
  4. LIPITOR [Suspect]
     Indication: HYPERLIPIDAEMIA
     Dosage: 20 MG
     Route: 048
     Dates: start: 20120501
  5. SODIUM BICARBONATE [Concomitant]
     Dosage: UNK
  6. ISOSORBIDE MONONITRATE [Concomitant]
     Dosage: UNK
  7. PHENOLPHTHALEIN [Concomitant]
     Dosage: UNK

REACTIONS (1)
  - HYPERKALAEMIA [None]
